FAERS Safety Report 12551067 (Version 2)
Quarter: 2016Q3

REPORT INFORMATION
  Report Type: Spontaneous
  Country: DE (occurrence: DE)
  Receive Date: 20160713
  Receipt Date: 20160718
  Transmission Date: 20161109
  Serious: Yes (Hospitalization, Other)
  Sender: FDA-Public Use
  Company Number: DE-ABBVIE-16K-062-1671620-00

PATIENT
  Age: 37 Year
  Sex: Male
  Weight: 70 kg

DRUGS (3)
  1. ACEMETACIN [Concomitant]
     Active Substance: ACEMETACIN
     Indication: PRODUCT USED FOR UNKNOWN INDICATION
  2. VITAMIN D [Concomitant]
     Active Substance: CHOLECALCIFEROL
     Indication: PRODUCT USED FOR UNKNOWN INDICATION
  3. HUMIRA [Suspect]
     Active Substance: ADALIMUMAB
     Indication: COLITIS ULCERATIVE
     Route: 058
     Dates: start: 201405, end: 20160705

REACTIONS (7)
  - Pain in extremity [Unknown]
  - Joint swelling [Unknown]
  - Systemic lupus erythematosus [Unknown]
  - Arthropathy [Unknown]
  - Arthralgia [Unknown]
  - Antinuclear antibody increased [Unknown]
  - Arthritis enteropathic [Unknown]

NARRATIVE: CASE EVENT DATE: 201605
